FAERS Safety Report 7525202-7 (Version None)
Quarter: 2011Q2

REPORT INFORMATION
  Report Type: 
  Country: None (occurrence: None)
  Receive Date: 20110526
  Receipt Date: 20110516
  Transmission Date: 20111010
  Serious: Yes (Death)
  Sender: FDA-Public Use
  Company Number: 906928

PATIENT
  Age: 69 Year
  Sex: Male

DRUGS (2)
  1. HYDROMORPHONE HCL [Suspect]
     Indication: PRODUCT USED FOR UNKNOWN INDICATION
     Dosage: 0.5 MG, INTRAVENOUS
     Route: 042
     Dates: start: 20110401, end: 20110401
  2. HYDROMORPHONE HCL [Suspect]
     Indication: PRODUCT USED FOR UNKNOWN INDICATION
     Dosage: 0.5 MG, INTRAVENOUS
     Route: 042
     Dates: start: 20110429, end: 20110429

REACTIONS (6)
  - FALL [None]
  - INCORRECT DOSE ADMINISTERED [None]
  - DEVICE COMPUTER ISSUE [None]
  - HEAD INJURY [None]
  - PULSE ABSENT [None]
  - RESPIRATORY ARREST [None]
